FAERS Safety Report 4861423-X (Version None)
Quarter: 2005Q4

REPORT INFORMATION
  Report Type: 
  Country: None (occurrence: None)
  Receive Date: 20051220
  Receipt Date: 20050621
  Transmission Date: 20060501
  Serious: Yes (Death, Life-Threatening)
  Sender: FDA-Public Use
  Company Number: DE-ROCHE-408121

PATIENT
  Age: 70 Year
  Sex: Male

DRUGS (4)
  1. MYCOPHENOLATE MOFETIL [Suspect]
     Route: 048
     Dates: start: 20050515, end: 20050611
  2. MYCOPHENOLATE MOFETIL [Suspect]
     Route: 048
     Dates: start: 20050706
  3. TACROLIMUS [Suspect]
     Route: 048
     Dates: start: 20050515, end: 20050611
  4. TACROLIMUS [Suspect]
     Route: 048
     Dates: start: 20050615, end: 20050705

REACTIONS (3)
  - LUNG INFECTION [None]
  - RENAL FAILURE ACUTE [None]
  - SEPSIS [None]
